FAERS Safety Report 10254543 (Version 1)
Quarter: 2014Q2

REPORT INFORMATION
  Report Type: Spontaneous
  Country: US (occurrence: US)
  Receive Date: 20140624
  Receipt Date: 20140624
  Transmission Date: 20141212
  Serious: Yes (Other)
  Sender: FDA-Public Use
  Company Number: US-RB-066861-14

PATIENT
  Age: 82 Year
  Sex: Male

DRUGS (2)
  1. CEPACOL LOZENGE CHERRY (BENZOCAINE) [Suspect]
     Indication: PRODUCT USED FOR UNKNOWN INDICATION
     Dosage: USED 8 LOZENGES AS NEEDED, TAKING LAST ON 12-JUN-2014,
     Route: 048
     Dates: start: 20140610
  2. CEPACOL LOZENGE CHERRY (MENTHOL) [Suspect]
     Indication: PRODUCT USED FOR UNKNOWN INDICATION
     Dosage: USED 8 LOZENGES AS NEEDED, TAKING LAST ON 12-JUN-2014.
     Route: 048
     Dates: start: 20140610

REACTIONS (1)
  - Blood glucose increased [Recovered/Resolved]
